FAERS Safety Report 21089753 (Version 1)
Quarter: 2022Q3

REPORT INFORMATION
  Report Type: Report from Study
  Country: PT (occurrence: PT)
  Receive Date: 20220715
  Receipt Date: 20220715
  Transmission Date: 20221027
  Serious: Yes (Death, Other)
  Sender: FDA-Public Use
  Company Number: PT-TAKEDA-2022TUS047415

PATIENT
  Sex: Male

DRUGS (1)
  1. IDURSULFASE [Suspect]
     Active Substance: IDURSULFASE
     Indication: Mucopolysaccharidosis II
     Dosage: 0.41 MILLIGRAM/KILOGRAM, 1/WEEK
     Route: 042
     Dates: start: 20070524, end: 20211019

REACTIONS (2)
  - Asphyxia [Fatal]
  - Accident [Fatal]

NARRATIVE: CASE EVENT DATE: 20211020
